FAERS Safety Report 22786988 (Version 3)
Quarter: 2024Q3

REPORT INFORMATION
  Report Type: Report from Study
  Country: US (occurrence: US)
  Receive Date: 20230804
  Receipt Date: 20240816
  Transmission Date: 20241017
  Serious: Yes (Other)
  Sender: ABBVIE
  Company Number: US-ABBVIE-5354207

PATIENT
  Sex: Female

DRUGS (4)
  1. SKYRIZI [Suspect]
     Active Substance: RISANKIZUMAB-RZAA
     Indication: Psoriatic arthropathy
     Route: 058
     Dates: start: 20130713
  2. SKYRIZI [Suspect]
     Active Substance: RISANKIZUMAB-RZAA
     Route: 058
     Dates: start: 20230307, end: 202405
  3. SKYRIZI [Suspect]
     Active Substance: RISANKIZUMAB-RZAA
     Route: 058
     Dates: start: 2023, end: 2023
  4. OMEGA 3 PLUS EVENING PRIMROSE OIL [Concomitant]
     Indication: Product used for unknown indication

REACTIONS (8)
  - Device physical property issue [Recovering/Resolving]
  - Arthralgia [Unknown]
  - Pain [Unknown]
  - Medical device pain [Not Recovered/Not Resolved]
  - Urinary tract infection [Unknown]
  - Malaise [Not Recovered/Not Resolved]
  - Medical device implantation [Unknown]
  - Psoriasis [Recovering/Resolving]

NARRATIVE: CASE EVENT DATE: 20190101
